FAERS Safety Report 9943589 (Version 2)
Quarter: 2014Q1

REPORT INFORMATION
  Report Type: Report from Study
  Country: US (occurrence: US)
  Receive Date: 20140303
  Receipt Date: 20140303
  Transmission Date: 20141002
  Serious: No
  Sender: FDA-Public Use
  Company Number: US-ABBVIE-12P-163-1025157-00

PATIENT
  Age: 58 Year
  Sex: Female

DRUGS (35)
  1. HUMIRA [Suspect]
     Indication: PSORIATIC ARTHROPATHY
     Route: 058
     Dates: start: 20120913, end: 20121227
  2. HUMIRA [Suspect]
     Indication: ANKYLOSING SPONDYLITIS
     Dates: start: 20130207
  3. AMITIZA [Concomitant]
     Indication: IRRITABLE BOWEL SYNDROME
  4. ASPIRIN [Concomitant]
     Indication: PROPHYLAXIS
  5. COLACE [Concomitant]
     Indication: CONSTIPATION PROPHYLAXIS
     Dosage: 2 TAB TWICE A DAY
  6. DETROL [Concomitant]
     Indication: URINARY INCONTINENCE
     Dates: end: 201211
  7. DILTIAZEM [Concomitant]
     Indication: PALPITATIONS
  8. LISINOPRIL [Concomitant]
     Indication: BLOOD PRESSURE
     Dosage: 20-25
  9. LISINOPRIL [Concomitant]
     Indication: FLUID RETENTION
  10. LEXAPRO [Concomitant]
     Indication: DEPRESSION
  11. ADDERALL [Concomitant]
     Indication: SOMNOLENCE
  12. LYRICA [Concomitant]
     Indication: FIBROMYALGIA
  13. LYRICA [Concomitant]
     Dosage: AT HS
  14. NEXIUM [Concomitant]
     Indication: ABDOMINAL DISCOMFORT
  15. OXYCONTIN [Concomitant]
     Indication: ARTHRITIS
  16. OXYCONTIN [Concomitant]
     Indication: FIBROMYALGIA
  17. METHOTREXATE [Concomitant]
     Indication: ARTHRITIS
     Dates: start: 20121220
  18. METHOTREXATE [Concomitant]
  19. REVATIO [Concomitant]
     Indication: PULMONARY HYPERTENSION
  20. SIMVASTATIN [Concomitant]
     Indication: BLOOD CHOLESTEROL INCREASED
     Dosage: NIGHTLY
  21. WELLBUTRIN [Concomitant]
     Indication: DEPRESSION
  22. ZETIA [Concomitant]
     Indication: BLOOD CHOLESTEROL INCREASED
  23. VITAMIN D [Concomitant]
     Indication: VITAMIN D DEFICIENCY
  24. MULTIVITAMIN [Concomitant]
     Indication: PRODUCT USED FOR UNKNOWN INDICATION
  25. FOLIC ACID [Concomitant]
     Indication: PRODUCT USED FOR UNKNOWN INDICATION
  26. ZOLPIDEM [Concomitant]
     Indication: INSOMNIA
  27. PERCOCET [Concomitant]
     Indication: ARTHRALGIA
     Dosage: 5/325 AS NEEDED
  28. PERCOCET [Concomitant]
     Indication: ANKYLOSING SPONDYLITIS
  29. DESONIDE [Concomitant]
     Indication: PRURITUS
     Dosage: 3 X DAILY AS NEEDED
  30. ATELVIA [Concomitant]
     Indication: OSTEOPOROSIS
  31. ATELVIA [Concomitant]
  32. PREDNISONE [Concomitant]
     Indication: ARTHRALGIA
  33. FOSAMAX [Concomitant]
  34. SILIUM [Concomitant]
     Indication: FLATULENCE
  35. PROBIOTICS [Concomitant]
     Indication: PROBIOTIC THERAPY

REACTIONS (4)
  - Pain [Unknown]
  - Tooth infection [Recovering/Resolving]
  - Migraine [Recovering/Resolving]
  - Injection site haemorrhage [Recovering/Resolving]
